FAERS Safety Report 9831578 (Version 2)
Quarter: 2014Q1

REPORT INFORMATION
  Report Type: Spontaneous
  Country: JP (occurrence: JP)
  Receive Date: 20140121
  Receipt Date: 20140131
  Transmission Date: 20141002
  Serious: Yes (Death)
  Sender: FDA-Public Use
  Company Number: JP-JNJFOC-20140105338

PATIENT
  Age: 7 Decade
  Sex: Male

DRUGS (3)
  1. DUROTEP MT [Suspect]
     Indication: CANCER PAIN
     Dosage: 3 PATCHES OF 100 MCG/HR AND 2 PATCHES OF 25 MCG/HR
     Route: 062
  2. DUROTEP MT [Suspect]
     Indication: CANCER PAIN
     Route: 062
  3. DUROTEP MT [Suspect]
     Indication: CANCER PAIN
     Dosage: 3 PATCHES OF 100 MCG/HR
     Route: 062
     Dates: start: 201312

REACTIONS (2)
  - Pancreatic carcinoma [Fatal]
  - Drug ineffective [Unknown]
